FAERS Safety Report 7339200-X (Version None)
Quarter: 2011Q1

REPORT INFORMATION
  Report Type: 
  Country: None (occurrence: None)
  Receive Date: 20110308
  Receipt Date: 20110223
  Transmission Date: 20110831
  Serious: Yes (Hospitalization, Other)
  Sender: FDA-Public Use
  Company Number: PHHY2011BR10077

PATIENT
  Age: 83 Year
  Sex: Female

DRUGS (5)
  1. EXELON [Suspect]
     Dosage: 18 MG/10CM^2
  2. CLOPIDOGREL BISULFATE [Concomitant]
     Dosage: 75 MG, UNK
  3. EXELON [Suspect]
  4. HYDERGINE [Suspect]
     Dosage: 4.5 MG, UNK
  5. HYDERGINE [Suspect]
     Dosage: 1 DF, QD

REACTIONS (2)
  - MOTOR DYSFUNCTION [None]
  - CEREBRAL ISCHAEMIA [None]
